FAERS Safety Report 9374145 (Version 2)
Quarter: 2013Q3

REPORT INFORMATION
  Report Type: Spontaneous
  Country: US (occurrence: US)
  Receive Date: 20130628
  Receipt Date: 20130724
  Transmission Date: 20140515
  Serious: Yes (Other)
  Sender: FDA-Public Use
  Company Number: US-PFIZER INC-2013191850

PATIENT
  Age: 60 Year
  Sex: Female
  Weight: 131.52 kg

DRUGS (16)
  1. LYRICA [Suspect]
     Indication: NEUROPATHY PERIPHERAL
     Dosage: 100 MG, 3X/DAY
     Dates: start: 2007
  2. LYRICA [Suspect]
     Indication: PAIN
  3. LYRICA [Suspect]
     Indication: NEUROPATHY PERIPHERAL
  4. LYRICA [Suspect]
     Indication: SLEEP DISORDER
  5. LYRICA [Suspect]
     Indication: SYRINGOMYELIA
  6. CYMBALTA [Concomitant]
     Indication: NEUROPATHY PERIPHERAL
     Dosage: 60 MG, 2X/DAY
  7. LANTUS [Concomitant]
     Indication: DIABETES MELLITUS
     Dosage: 85 IU, UNK
  8. GLUCOPHAGE [Concomitant]
     Indication: DIABETES MELLITUS
     Dosage: 1000 MG, 2X/DAY
  9. LIPITOR [Concomitant]
     Dosage: 80 MG, UNK
  10. VESICARE [Concomitant]
     Indication: URINARY INCONTINENCE
     Dosage: 10 MG, UNK
  11. CELEBREX [Concomitant]
     Indication: ARTHRITIS
     Dosage: 200 MG, 2X/DAY
  12. PRAMIPEXOLE DIHYDROCHLORIDE [Concomitant]
     Indication: RESTLESS LEGS SYNDROME
     Dosage: 0.5 MG, UNK
  13. PROTONIX [Concomitant]
     Indication: GASTROOESOPHAGEAL REFLUX DISEASE
     Dosage: 40 MG, UNK
  14. ASPIRIN [Concomitant]
     Dosage: 81 MG, UNK
  15. CENTRUM ULTRA WOMEN^S [Concomitant]
     Indication: VITAMIN SUPPLEMENTATION
     Dosage: UNK
  16. LOSARTAN POTASSIUM [Concomitant]
     Indication: HYPERTENSION
     Dosage: 100 MG, UNK

REACTIONS (5)
  - Off label use [Unknown]
  - Dyspnoea [Unknown]
  - Pain [Unknown]
  - Feeling abnormal [Unknown]
  - Asthenia [Unknown]
